FAERS Safety Report 4767027-1 (Version None)
Quarter: 2005Q3

REPORT INFORMATION
  Report Type: 
  Country: None (occurrence: None)
  Receive Date: 20050913
  Receipt Date: 20050901
  Transmission Date: 20060218
  Serious: Yes (Hospitalization)
  Sender: FDA-Public Use
  Company Number: US-JNJFOC-20050900248

PATIENT
  Sex: Male

DRUGS (13)
  1. INFLIXIMAB [Suspect]
     Indication: RHEUMATOID ARTHRITIS
     Route: 042
  2. BUSPAR [Concomitant]
  3. FOLIC ACID [Concomitant]
  4. ZIAC [Concomitant]
  5. ZIAC [Concomitant]
  6. CELEBREX [Concomitant]
  7. FLOMAX [Concomitant]
  8. METHOTREXATE [Concomitant]
  9. ADVAIR DISKUS 100/50 [Concomitant]
  10. ADVAIR DISKUS 100/50 [Concomitant]
     Dosage: 250 - 500 MG, 2 IN 1 DAY
  11. PRILOSEC [Concomitant]
  12. ALBUTEROL [Concomitant]
     Route: 055
  13. NASONEX [Concomitant]

REACTIONS (1)
  - MYCOBACTERIAL INFECTION [None]
